FAERS Safety Report 12673598 (Version 1)
Quarter: 2016Q3

REPORT INFORMATION
  Report Type: Spontaneous
  Country: US (occurrence: US)
  Receive Date: 20160822
  Receipt Date: 20160822
  Transmission Date: 20161109
  Serious: Yes (Other)
  Sender: FDA-Public Use
  Company Number: US-FRI-1000082555

PATIENT
  Sex: Female
  Weight: 59.09 kg

DRUGS (3)
  1. SAPHRIS [Suspect]
     Active Substance: ASENAPINE MALEATE
     Indication: SCHIZOPHRENIA
     Route: 048
  2. SAPHRIS [Suspect]
     Active Substance: ASENAPINE MALEATE
     Indication: UNEVALUABLE EVENT
  3. SEVERAL UNSPECIFIED MEDICATIONS [Suspect]
     Active Substance: UNSPECIFIED INGREDIENT

REACTIONS (2)
  - Drug interaction [Recovered/Resolved]
  - Suicidal ideation [Recovered/Resolved]
